FAERS Safety Report 6597122-6 (Version None)
Quarter: 2010Q1

REPORT INFORMATION
  Report Type: 
  Country: None (occurrence: None)
  Receive Date: 20100223
  Receipt Date: 20100209
  Transmission Date: 20100710
  Serious: Yes (Hospitalization)
  Sender: FDA-Public Use
  Company Number: NL-MEDIMMUNE-MEDI-0010527

PATIENT
  Sex: Male
  Weight: 5.7 kg

DRUGS (3)
  1. SYNAGIS [Suspect]
     Route: 030
     Dates: start: 20091020, end: 20100112
  2. LACTULOSE [Concomitant]
  3. THEOFILIN [Concomitant]

REACTIONS (4)
  - APNOEA [None]
  - PYREXIA [None]
  - VIRAL INFECTION [None]
  - WHEEZING [None]
